FAERS Safety Report 15871505 (Version 2)
Quarter: 2024Q2

REPORT INFORMATION
  Report Type: Spontaneous
  Country: US (occurrence: US)
  Receive Date: 20190126
  Receipt Date: 20240408
  Transmission Date: 20240716
  Serious: Yes (Hospitalization, Other)
  Sender: FDA-Public Use
  Company Number: US-ACORDA-ACO_146245_2018

PATIENT
  Sex: Female

DRUGS (2)
  1. AMPYRA [Suspect]
     Active Substance: DALFAMPRIDINE
     Indication: Multiple sclerosis
     Dosage: 10 MG, BID (Q12H)
     Route: 048
     Dates: start: 20140218
  2. AUBAGIO [Suspect]
     Active Substance: TERIFLUNOMIDE
     Indication: Multiple sclerosis
     Dosage: 14 MILLIGRAM, QD
     Route: 048
     Dates: start: 20160822

REACTIONS (3)
  - Deep vein thrombosis [Unknown]
  - Hypertension [Unknown]
  - Therapy interrupted [Unknown]
